FAERS Safety Report 6530808-8 (Version None)
Quarter: 2010Q1

REPORT INFORMATION
  Report Type: 
  Country: None (occurrence: None)
  Receive Date: 20100108
  Receipt Date: 20090306
  Transmission Date: 20100710
  Serious: No
  Sender: FDA-Public Use
  Company Number: A0772101A

PATIENT
  Age: 66 Year
  Sex: Male

DRUGS (11)
  1. LOVAZA [Suspect]
     Indication: DRUG USE FOR UNKNOWN INDICATION
     Dosage: 4G PER DAY
     Route: 048
     Dates: start: 20081101, end: 20090227
  2. TOPROL-XL [Concomitant]
  3. ALTACE [Concomitant]
  4. LIALDA [Concomitant]
  5. ASACOL [Concomitant]
  6. PROTONIX [Concomitant]
  7. NIASPAN [Concomitant]
  8. LESCOL XL [Concomitant]
  9. SYNTHROID [Concomitant]
  10. MULTI-VITAMIN [Concomitant]
  11. PREDNISONE [Concomitant]

REACTIONS (3)
  - DRUG INEFFECTIVE [None]
  - THERAPEUTIC RESPONSE UNEXPECTED [None]
  - WEIGHT DECREASED [None]
